FAERS Safety Report 13103672 (Version 1)
Quarter: 2017Q1

REPORT INFORMATION
  Report Type: Spontaneous
  Country: IL (occurrence: IL)
  Receive Date: 20170111
  Receipt Date: 20170111
  Transmission Date: 20170428
  Serious: Yes (Death, Other)
  Sender: FDA-Public Use
  Company Number: IL-ACCORD-047305

PATIENT

DRUGS (2)
  1. LEVETIRACETAM. [Suspect]
     Active Substance: LEVETIRACETAM
     Indication: BRAIN NEOPLASM
  2. TEMOZOLOMIDE. [Interacting]
     Active Substance: TEMOZOLOMIDE
     Indication: BRAIN NEOPLASM

REACTIONS (2)
  - Drug interaction [Unknown]
  - Acute hepatic failure [Fatal]
